FAERS Safety Report 5008492-4 (Version None)
Quarter: 2006Q2

REPORT INFORMATION
  Report Type: 
  Country: None (occurrence: None)
  Receive Date: 20060518
  Receipt Date: 20060502
  Transmission Date: 20061013
  Serious: Yes (Hospitalization)
  Sender: FDA-Public Use
  Company Number: 222858

PATIENT
  Age: 65 Year
  Sex: Female
  Weight: 69 kg

DRUGS (10)
  1. AVASTIN [Suspect]
     Indication: COLON CANCER
     Dosage: 7.5 MG/KG, Q3W, INTRAVENOUS
     Route: 042
     Dates: start: 20050909, end: 20060224
  2. OXALIPLATIN (OXALIPLATIN) [Suspect]
     Indication: COLON CANCER
     Dosage: SEE IMAGE
     Dates: start: 20050909
  3. CAPECITABINE (CAPECITABINE) [Suspect]
     Indication: COLON CANCER
     Dosage: SEE IMAGE
     Dates: start: 20050909
  4. LOSARTAN (LOSARTAN POTASSIUM) [Concomitant]
  5. METFORMIN [Concomitant]
  6. SIMVASTATIN [Concomitant]
  7. RABEPRAZOLE SODIUM [Concomitant]
  8. BISOPROLOL FUMARATE [Concomitant]
  9. COSAAR (LOSARTAN POTASSIUM) [Concomitant]
  10. LOVENOX [Concomitant]

REACTIONS (5)
  - ABASIA [None]
  - DEEP VEIN THROMBOSIS [None]
  - NECROSIS [None]
  - NEUROTOXICITY [None]
  - PALMAR-PLANTAR ERYTHRODYSAESTHESIA SYNDROME [None]
